FAERS Safety Report 13768400 (Version 3)
Quarter: 2017Q3

REPORT INFORMATION
  Report Type: Report from Study
  Country: None (occurrence: NL)
  Receive Date: 20170719
  Receipt Date: 20170809
  Transmission Date: 20171127
  Serious: Yes (Hospitalization, Other)
  Sender: FDA-Public Use
  Company Number: NL-ABBVIE-17P-114-2041010-00

PATIENT
  Age: 52 Year
  Sex: Female
  Weight: 62 kg

DRUGS (1)
  1. LUCRIN DEPOT [Suspect]
     Active Substance: LEUPROLIDE ACETATE
     Indication: UTERINE LEIOMYOMA
     Route: 030
     Dates: start: 20170706, end: 20170706

REACTIONS (4)
  - Ovarian disorder [Recovered/Resolved]
  - Procedural pain [Not Recovered/Not Resolved]
  - Pelvic adhesions [Recovered/Resolved]
  - Uterine cervical pain [Recovered/Resolved]

NARRATIVE: CASE EVENT DATE: 2017
